FAERS Safety Report 9100829 (Version 1)
Quarter: 2013Q1

REPORT INFORMATION
  Report Type: Spontaneous
  Country: US (occurrence: None)
  Receive Date: 20130220
  Receipt Date: 20130220
  Transmission Date: 20140127
  Serious: Yes (Other)
  Sender: FDA-Public Use
  Company Number: None

PATIENT
  Age: 33 Year
  Sex: Female
  Weight: 58.97 kg

DRUGS (1)
  1. PARAGUARD IUD [Suspect]
     Indication: CONTRACEPTION
     Dosage: 1  INTRA-UTERINE
     Route: 015
     Dates: start: 20090908, end: 20100120

REACTIONS (4)
  - Medical device complication [None]
  - Uterine cervical pain [None]
  - Abdominal pain lower [None]
  - Uterine inflammation [None]
